FAERS Safety Report 15156643 (Version 2)
Quarter: 2018Q3

REPORT INFORMATION
  Report Type: Spontaneous
  Country: DE (occurrence: DE)
  Receive Date: 20180717
  Receipt Date: 20180801
  Transmission Date: 20181010
  Serious: Yes (Other)
  Sender: FDA-Public Use
  Company Number: DE-BRISTOL-MYERS SQUIBB COMPANY-BMS-2018-065314

PATIENT
  Age: 73 Year
  Sex: Female
  Weight: 79.2 kg

DRUGS (1)
  1. OPDIVO [Suspect]
     Active Substance: NIVOLUMAB
     Indication: MALIGNANT MELANOMA
     Dosage: 3 MG/KG, UNK
     Route: 065
     Dates: start: 20171211

REACTIONS (2)
  - Haemolysis [Recovered/Resolved]
  - Coombs test positive [Recovered/Resolved]

NARRATIVE: CASE EVENT DATE: 20180109
